FAERS Safety Report 9404120 (Version 2)
Quarter: 2013Q3

REPORT INFORMATION
  Report Type: Spontaneous
  Country: TR (occurrence: None)
  Receive Date: 20130711
  Receipt Date: 20130722
  Transmission Date: 20140515
  Serious: Yes (Death, Hospitalization)
  Sender: FDA-Public Use
  Company Number: UTC-035010

PATIENT
  Sex: Female

DRUGS (4)
  1. REMODULIN (INJECTION FOR INFUSION) (TREPROSTINIL SODIUM) [Suspect]
     Indication: PULMONARY ARTERIAL HYPERTENSION
     Dosage: 0.002 ML/HR, SUBCUTANEOUS
     Route: 058
     Dates: start: 20120304, end: 20130621
  2. BOSENTAN [Concomitant]
  3. ILOPROST (INHALANT) [Concomitant]
  4. SILDENAFIL [Concomitant]

REACTIONS (8)
  - Right ventricular failure [None]
  - Dyspnoea [None]
  - Cardiogenic shock [None]
  - Infusion site reaction [None]
  - Infusion site pain [None]
  - Cellulitis [None]
  - Metabolic acidosis [None]
  - Tachycardia [None]
